FAERS Safety Report 22254575 (Version 1)
Quarter: 2023Q2

REPORT INFORMATION
  Report Type: Spontaneous
  Country: US (occurrence: US)
  Receive Date: 20230426
  Receipt Date: 20230426
  Transmission Date: 20230722
  Serious: Yes (Hospitalization)
  Sender: FDA-Public Use
  Company Number: US-SA-SAC20230425001316

PATIENT
  Sex: Male

DRUGS (1)
  1. DUPIXENT [Suspect]
     Active Substance: DUPILUMAB
     Indication: Asthma
     Dosage: 300 MG FREQUENCY: OTHER 300MG/2ML
     Route: 058
     Dates: start: 2020, end: 2023

REACTIONS (2)
  - Asthma [Unknown]
  - Eczema [Unknown]

NARRATIVE: CASE EVENT DATE: 20230401
